FAERS Safety Report 20100312 (Version 1)
Quarter: 2021Q4

REPORT INFORMATION
  Report Type: Spontaneous
  Country: BG (occurrence: BG)
  Receive Date: 20211123
  Receipt Date: 20211123
  Transmission Date: 20220304
  Serious: Yes (Other)
  Sender: FDA-Public Use
  Company Number: None

PATIENT
  Age: 34 Year
  Sex: Male

DRUGS (1)
  1. OCREVUS [Suspect]
     Active Substance: OCRELIZUMAB
     Indication: Multiple sclerosis
     Route: 065
     Dates: start: 2020

REACTIONS (1)
  - Tuberculosis [Recovering/Resolving]
